FAERS Safety Report 17582926 (Version 1)
Quarter: 2020Q1

REPORT INFORMATION
  Report Type: Other
  Country: US (occurrence: US)
  Receive Date: 20200325
  Receipt Date: 20200325
  Transmission Date: 20200409
  Serious: Yes (Death, Hospitalization)
  Sender: FDA-Public Use
  Company Number: US-VERASTEM-2019-00646

PATIENT

DRUGS (5)
  1. COPIKTRA [Suspect]
     Active Substance: DUVELISIB
     Indication: ANGIOIMMUNOBLASTIC T-CELL LYMPHOMA
     Dosage: 75 MG, BID
     Route: 048
     Dates: start: 20191204, end: 202001
  2. BELINOSTAT [Concomitant]
     Active Substance: BELINOSTAT
     Dosage: UNK
     Route: 065
     Dates: start: 20191210
  3. CHEMOTHERAPEUTICS [Concomitant]
     Active Substance: UNSPECIFIED INGREDIENT
     Indication: ANGIOIMMUNOBLASTIC T-CELL LYMPHOMA
     Route: 042
  4. BELINOSTAT [Concomitant]
     Active Substance: BELINOSTAT
     Dosage: UNK
     Route: 065
     Dates: start: 20191118
  5. BELINOSTAT [Concomitant]
     Active Substance: BELINOSTAT
     Indication: T-CELL LYMPHOMA
     Dosage: UNK
     Dates: start: 20191029

REACTIONS (10)
  - Malignant neoplasm progression [Not Recovered/Not Resolved]
  - Product dose omission [Recovered/Resolved with Sequelae]
  - Anaemia [Unknown]
  - Fatigue [Unknown]
  - Hypokalaemia [Unknown]
  - Thrombocytopenia [Unknown]
  - Neutropenia [Unknown]
  - Respiratory failure [Fatal]
  - Product use in unapproved indication [Not Recovered/Not Resolved]
  - Nausea [Unknown]

NARRATIVE: CASE EVENT DATE: 2019
